FAERS Safety Report 6932870-7 (Version None)
Quarter: 2010Q3

REPORT INFORMATION
  Report Type: 
  Country: None (occurrence: None)
  Receive Date: 20100819
  Receipt Date: 20100811
  Transmission Date: 20110219
  Serious: Yes (Death, Hospitalization, Other)
  Sender: FDA-Public Use
  Company Number: US-MILLENNIUM PHARMACEUTICALS, INC.-2010-04307

PATIENT
  Age: 69 Year
  Sex: Male

DRUGS (4)
  1. VELCADE [Suspect]
     Indication: MULTIPLE MYELOMA
  2. THALIDOMIDE [Suspect]
     Indication: MULTIPLE MYELOMA
  3. DEXAMETHASONE [Suspect]
     Indication: MULTIPLE MYELOMA
  4. OSELTAMIVIR [Concomitant]
     Indication: INFLUENZA
     Dosage: 150 MG, BID

REACTIONS (10)
  - CELLULITIS ORBITAL [None]
  - CEREBRAL INFARCTION [None]
  - HYPOXIA [None]
  - INFLUENZA [None]
  - LUNG CONSOLIDATION [None]
  - LUNG DISORDER [None]
  - MENTAL STATUS CHANGES [None]
  - PYREXIA [None]
  - RENAL IMPAIRMENT [None]
  - SINUSITIS FUNGAL [None]
